FAERS Safety Report 17064287 (Version 2)
Quarter: 2019Q4

REPORT INFORMATION
  Report Type: Report from Study
  Country: CA (occurrence: CA)
  Receive Date: 20191122
  Receipt Date: 20191126
  Transmission Date: 20200122
  Serious: Yes (Life-Threatening, Hospitalization, Disabling, Other)
  Sender: FDA-Public Use
  Company Number: CA-AMGEN-CANNI2019194530

PATIENT
  Age: 41 Year
  Sex: Female

DRUGS (1)
  1. AIMOVIG [Suspect]
     Active Substance: ERENUMAB-AOOE
     Indication: MIGRAINE
     Dosage: 70 MILLIGRAM, QMO
     Route: 058
     Dates: start: 20190812, end: 20191118

REACTIONS (3)
  - Drug ineffective [Unknown]
  - Cerebrovascular accident [Recovered/Resolved with Sequelae]
  - Sensory loss [Unknown]

NARRATIVE: CASE EVENT DATE: 20191106
